FAERS Safety Report 8044543-0 (Version None)
Quarter: 2012Q1

REPORT INFORMATION
  Report Type: 
  Country: None (occurrence: None)
  Receive Date: 20120113
  Receipt Date: 20120110
  Transmission Date: 20120608
  Serious: No
  Sender: FDA-Public Use
  Company Number: US-B.I. PHARMACEUTICALS,INC./RIDGEFIELD-2011-BP-23404BP

PATIENT
  Age: 88 Year
  Sex: Female

DRUGS (8)
  1. PRADAXA [Suspect]
     Indication: ATRIAL FIBRILLATION
     Dosage: 300 MG
     Route: 048
     Dates: start: 20110801
  2. VITAMIN B-12 [Concomitant]
  3. ZOCOR [Concomitant]
     Indication: BLOOD CHOLESTEROL INCREASED
     Dosage: 20 MG
     Route: 048
  4. VITAMIN B COMPLEX CAP [Concomitant]
  5. NORPACE [Concomitant]
     Indication: ATRIAL FIBRILLATION
  6. CYANOCOBALAMIN [Concomitant]
     Route: 048
  7. NORPACE [Concomitant]
     Indication: HYPERTENSION
     Dosage: 300 MG
     Route: 048
  8. SYNTHROID [Concomitant]
     Indication: HYPOTHYROIDISM
     Dosage: 0.1 MCG

REACTIONS (8)
  - RASH PRURITIC [None]
  - PRURITUS [None]
  - CONSTIPATION [None]
  - PEMPHIGOID [None]
  - RASH MACULAR [None]
  - RASH [None]
  - PAIN IN EXTREMITY [None]
  - RASH MACULO-PAPULAR [None]
